FAERS Safety Report 8104360-X (Version None)
Quarter: 2012Q1

REPORT INFORMATION
  Report Type: 
  Country: None (occurrence: None)
  Receive Date: 20120201
  Receipt Date: 20120125
  Transmission Date: 20120608
  Serious: Yes (Other)
  Sender: FDA-Public Use
  Company Number: GB-PFIZER INC-2011274058

PATIENT
  Age: 14 Month
  Sex: Male

DRUGS (3)
  1. REFACTO [Suspect]
     Dosage: 3 DOSES (UNKNOWN UNITS AND FREQUENCY)
     Dates: start: 20110601
  2. REFACTO [Suspect]
     Dosage: RECURRENT TREATMENTS (UNKNOWN UNITS AND FREQUENCIES)
  3. REFACTO [Suspect]
     Indication: FACTOR VIII DEFICIENCY
     Dosage: 1 DOSE (UNKNOWN UNITS AND FREQUENCY)
     Dates: start: 20110501

REACTIONS (1)
  - FACTOR VIII INHIBITION [None]
